FAERS Safety Report 11189704 (Version 1)
Quarter: 2015Q2

REPORT INFORMATION
  Report Type: Spontaneous
  Country: US (occurrence: US)
  Receive Date: 20150615
  Receipt Date: 20150615
  Transmission Date: 20150821
  Serious: Yes (Other)
  Sender: FDA-Public Use
  Company Number: US-BAYER-2015-328756

PATIENT
  Sex: Female

DRUGS (1)
  1. OXYTROL FOR WOMEN [Suspect]
     Active Substance: OXYBUTYNIN

REACTIONS (7)
  - Pyrexia [Unknown]
  - Application site reaction [Unknown]
  - Delirium [Unknown]
  - Chills [Unknown]
  - Influenza like illness [Unknown]
  - Diarrhoea [Unknown]
  - Disorientation [Unknown]
